FAERS Safety Report 22118252 (Version 1)
Quarter: 2023Q1

REPORT INFORMATION
  Report Type: Spontaneous
  Country: US (occurrence: US)
  Receive Date: 20230321
  Receipt Date: 20230321
  Transmission Date: 20230417
  Serious: Yes (Other)
  Sender: FDA-Public Use
  Company Number: US-drreddys-LIT/USA/23/0162593

PATIENT
  Age: 63 Year
  Sex: Female

DRUGS (2)
  1. PEMETREXED DISODIUM [Suspect]
     Active Substance: PEMETREXED DISODIUM
     Indication: Cardiac neoplasm unspecified
  2. CARBOPLATIN [Suspect]
     Active Substance: CARBOPLATIN
     Indication: Cardiac neoplasm unspecified

REACTIONS (1)
  - Drug ineffective for unapproved indication [Unknown]
